FAERS Safety Report 6531640-1 (Version None)
Quarter: 2010Q1

REPORT INFORMATION
  Report Type: 
  Country: None (occurrence: None)
  Receive Date: 20100108
  Receipt Date: 20100107
  Transmission Date: 20100710
  Serious: Yes (Other)
  Sender: FDA-Public Use
  Company Number: JP-SANOFI-AVENTIS-2010SA000471

PATIENT
  Age: 86 Year
  Sex: Male

DRUGS (4)
  1. LASIX [Suspect]
     Route: 048
  2. MICARDIS [Concomitant]
  3. AMLODIN [Concomitant]
  4. SALOBEL [Concomitant]

REACTIONS (1)
  - PANCYTOPENIA [None]
